FAERS Safety Report 5410850-0 (Version None)
Quarter: 2007Q3

REPORT INFORMATION
  Report Type: 
  Country: None (occurrence: None)
  Receive Date: 20070810
  Receipt Date: 20070731
  Transmission Date: 20080115
  Serious: Yes (Disabling)
  Sender: FDA-Public Use
  Company Number: JP-JNJFOC-20070801377

PATIENT
  Sex: Male

DRUGS (6)
  1. LEVOFLOXACIN [Suspect]
     Indication: TONSILLITIS
     Route: 048
  2. LOXONIN [Concomitant]
     Route: 065
  3. CODEINE PHOSPHATE [Concomitant]
     Route: 065
  4. BROCIN [Concomitant]
     Route: 065
  5. MUCODYNE [Concomitant]
     Route: 065
  6. APRICOT KERNEL WATER [Concomitant]
     Route: 065

REACTIONS (1)
  - BLOOD PRESSURE DECREASED [None]
